FAERS Safety Report 9976063 (Version 1)
Quarter: 2014Q1

REPORT INFORMATION
  Report Type: Report from Study
  Country: US (occurrence: US)
  Receive Date: 20140306
  Receipt Date: 20140306
  Transmission Date: 20141002
  Serious: Yes (Hospitalization)
  Sender: FDA-Public Use
  Company Number: US-ABBVIE-14P-163-1207154-00

PATIENT
  Age: 68 Year
  Sex: Male

DRUGS (16)
  1. HUMIRA [Suspect]
     Indication: CROHN^S DISEASE
     Dates: start: 20131213
  2. MORPHINE [Concomitant]
     Indication: PAIN
     Route: 048
  3. HYDROCODONE [Concomitant]
     Indication: PAIN
     Dosage: 325/5 MG
     Route: 048
  4. PENTASA [Concomitant]
     Indication: CROHN^S DISEASE
     Route: 048
  5. BUDESONIDE [Concomitant]
     Indication: CROHN^S DISEASE
     Route: 048
  6. POTASSIUM CHLORIDE [Concomitant]
     Indication: MUSCLE SPASMS
     Route: 048
  7. POTASSIUM CHLORIDE [Concomitant]
     Indication: MUSCLE SPASMS
  8. POTASSIUM CHLORIDE [Concomitant]
     Indication: MUSCLE SPASMS
  9. PANTOPRAZOLE [Concomitant]
     Indication: ABDOMINAL DISCOMFORT
     Route: 048
  10. CYCLOBENZAPRINE [Concomitant]
     Indication: MUSCLE RELAXANT THERAPY
     Route: 048
  11. SIMVASTATIN [Concomitant]
     Indication: BLOOD CHOLESTEROL INCREASED
     Dosage: HALF TABLET BY MOUTH AT BEDTIME
  12. FOLIC ACID [Concomitant]
     Indication: VITAMIN SUPPLEMENTATION
     Route: 048
  13. METOPROLOL TARTRATE [Concomitant]
     Indication: PRODUCT USED FOR UNKNOWN INDICATION
     Dosage: HALF TABLET TWICE DAILY. (PT IS UNSURE WHY HE TAKES THIS)
  14. FENOFIBRATE [Concomitant]
     Indication: BLOOD CHOLESTEROL
     Route: 048
  15. ASPIRIN [Concomitant]
     Indication: PROPHYLAXIS
     Route: 048
  16. MIRTAZAPINE [Concomitant]
     Indication: DEPRESSION
     Dosage: AT BEDTIME
     Route: 048

REACTIONS (3)
  - Constipation [Recovered/Resolved]
  - Dehydration [Recovered/Resolved]
  - Abdominal pain lower [Recovered/Resolved]
